FAERS Safety Report 17885873 (Version 1)
Quarter: 2020Q2

REPORT INFORMATION
  Report Type: Spontaneous
  Country: US (occurrence: US)
  Receive Date: 20200611
  Receipt Date: 20200611
  Transmission Date: 20200714
  Serious: Yes (Other)
  Sender: FDA-Public Use
  Company Number: US-009507513-2006USA003041

PATIENT
  Sex: Female

DRUGS (3)
  1. LENVATINIB MESYLATE [Suspect]
     Active Substance: LENVATINIB MESYLATE
     Indication: ENDOMETRIAL NEOPLASM
     Dosage: 20 MILLIGRAM, DAILY (QD)
     Route: 048
     Dates: start: 20200217, end: 20200410
  2. KEYTRUDA [Suspect]
     Active Substance: PEMBROLIZUMAB
     Dosage: UNK
  3. LENVATINIB MESYLATE [Suspect]
     Active Substance: LENVATINIB MESYLATE
     Dosage: 20 MILLIGRAM, DAILY (QD)
     Route: 048
     Dates: start: 20200411

REACTIONS (8)
  - Skin exfoliation [Not Recovered/Not Resolved]
  - Headache [Recovered/Resolved]
  - Erythema [Recovered/Resolved]
  - Blister [Not Recovered/Not Resolved]
  - Dyspnoea exertional [Not Recovered/Not Resolved]
  - Abdominal pain [Recovered/Resolved]
  - Hypothyroidism [Not Recovered/Not Resolved]
  - Diarrhoea [Not Recovered/Not Resolved]
